FAERS Safety Report 7600315-X (Version None)
Quarter: 2011Q2

REPORT INFORMATION
  Report Type: 
  Country: None (occurrence: None)
  Receive Date: 20110624
  Receipt Date: 20110412
  Transmission Date: 20111010
  Serious: Yes (Hospitalization)
  Sender: FDA-Public Use
  Company Number: SPV1-2011-00634

PATIENT
  Age: 4 Year
  Sex: Male

DRUGS (2)
  1. INTUNIV [Suspect]
     Indication: ATTENTION DEFICIT/HYPERACTIVITY DISORDER
     Dosage: 2 MG, 1X/DAY:;QD, ORAL  : 1 MG, 1X/DAY:QD, ORAL
     Route: 048
     Dates: start: 20110101, end: 20110101
  2. INTUNIV [Suspect]
     Indication: ATTENTION DEFICIT/HYPERACTIVITY DISORDER
     Dosage: 2 MG, 1X/DAY:;QD, ORAL  : 1 MG, 1X/DAY:QD, ORAL
     Route: 048
     Dates: start: 20110101, end: 20110401

REACTIONS (3)
  - HEART RATE DECREASED [None]
  - HYPOTENSION [None]
  - OFF LABEL USE [None]
